FAERS Safety Report 13995737 (Version 2)
Quarter: 2020Q3

REPORT INFORMATION
  Report Type: Spontaneous
  Country: US (occurrence: US)
  Receive Date: 20170921
  Receipt Date: 20190521
  Transmission Date: 20201104
  Serious: No
  Sender: FDA-Public Use
  Company Number: US-PFIZER INC-2017407946

PATIENT
  Age: 68 Year
  Sex: Female

DRUGS (5)
  1. AMINOBENZOATE POTASSIUM. [Suspect]
     Active Substance: AMINOBENZOATE POTASSIUM
     Dosage: UNK
  2. CALCIUM OXIDE [Suspect]
     Active Substance: LIME (CALCIUM OXIDE)
     Dosage: UNK
  3. ADVAIR HFA [Suspect]
     Active Substance: FLUTICASONE PROPIONATE\SALMETEROL XINAFOATE
     Dosage: UNK
  4. IBUPROFEN. [Suspect]
     Active Substance: IBUPROFEN
     Dosage: UNK
  5. NICOTINE. [Suspect]
     Active Substance: NICOTINE
     Dosage: UNK

REACTIONS (1)
  - Drug hypersensitivity [Unknown]
